FAERS Safety Report 5929876-3 (Version None)
Quarter: 2008Q4

REPORT INFORMATION
  Report Type: 
  Country: None (occurrence: None)
  Receive Date: 20081024
  Receipt Date: 20081013
  Transmission Date: 20090506
  Serious: Yes (Other)
  Sender: FDA-Public Use
  Company Number: US-PFIZER INC-2008048312

PATIENT
  Sex: Male
  Weight: 99.8 kg

DRUGS (1)
  1. BEXTRA [Suspect]
     Indication: INFLAMMATION
     Dates: start: 20030901

REACTIONS (2)
  - HYPERSENSITIVITY [None]
  - LIBIDO DECREASED [None]
